FAERS Safety Report 6858828-4 (Version None)
Quarter: 2010Q3

REPORT INFORMATION
  Report Type: 
  Country: None (occurrence: None)
  Receive Date: 20100719
  Receipt Date: 20080212
  Transmission Date: 20110219
  Serious: No
  Sender: FDA-Public Use
  Company Number: US-PFIZER INC-2008015454

PATIENT
  Sex: Female
  Weight: 125.9 kg

DRUGS (8)
  1. CHANTIX [Suspect]
     Indication: SMOKING CESSATION THERAPY
     Dates: start: 20080111, end: 20080209
  2. PROZAC [Concomitant]
     Dates: start: 20060101
  3. PRILOSEC [Concomitant]
     Indication: GASTROOESOPHAGEAL REFLUX DISEASE
     Dates: start: 20060101
  4. PRILOSEC [Concomitant]
     Indication: FLATULENCE
  5. LASIX [Concomitant]
     Indication: CARDIAC FAILURE
     Dates: start: 20080101
  6. ELAVIL [Concomitant]
     Indication: DEPRESSION
     Dates: start: 20070901
  7. ALL OTHER THERAPEUTIC PRODUCTS [Concomitant]
     Dates: start: 20070801
  8. AMBIEN [Concomitant]
     Indication: CIRCADIAN RHYTHM SLEEP DISORDER

REACTIONS (3)
  - ABDOMINAL DISTENSION [None]
  - CIRCADIAN RHYTHM SLEEP DISORDER [None]
  - FLATULENCE [None]
